FAERS Safety Report 9437735 (Version 3)
Quarter: 2013Q3

REPORT INFORMATION
  Report Type: Report from Study
  Country: AU (occurrence: AU)
  Receive Date: 20130802
  Receipt Date: 20130819
  Transmission Date: 20140515
  Serious: Yes (Hospitalization)
  Sender: FDA-Public Use
  Company Number: PHHY2013AU082776

PATIENT
  Sex: Male

DRUGS (2)
  1. CLOZARIL [Suspect]
     Dosage: 700 MG, UNK
     Dates: start: 19930720
  2. BENZODIAZEPINES [Suspect]

REACTIONS (4)
  - Mental impairment [Unknown]
  - Overdose [Unknown]
  - Renal failure [Unknown]
  - Drug ineffective [Unknown]
